FAERS Safety Report 16631068 (Version 1)
Quarter: 2019Q3

REPORT INFORMATION
  Report Type: Spontaneous
  Country: GB (occurrence: GB)
  Receive Date: 20190725
  Receipt Date: 20190725
  Transmission Date: 20191004
  Serious: Yes (Hospitalization, Disabling)
  Sender: FDA-Public Use
  Company Number: GB-009507513-1907GBR013206

PATIENT
  Age: 72 Year
  Sex: Male

DRUGS (15)
  1. TIMOLOL. [Concomitant]
     Active Substance: TIMOLOL
  2. CETIRIZINE HYDROCHLORIDE. [Concomitant]
     Active Substance: CETIRIZINE HYDROCHLORIDE
     Dosage: 10 MILLIGRAM, QD
  3. BOOTS 50 50 OINTMENT [Concomitant]
  4. FINASTERIDE. [Concomitant]
     Active Substance: FINASTERIDE
     Dosage: 5 MILLIGRAM, QD
  5. LEVOTHYROXINE SODIUM. [Concomitant]
     Active Substance: LEVOTHYROXINE SODIUM
     Dosage: 100 MICROGRAM, QD
  6. IMIPENEM AND CILASTATIN [Suspect]
     Active Substance: CILASTATIN SODIUM\IMIPENEM
  7. CLOFAZIMINE [Suspect]
     Active Substance: CLOFAZIMINE
  8. AMIKACIN. [Suspect]
     Active Substance: AMIKACIN
  9. TAMSULOSIN HYDROCHLORIDE. [Concomitant]
     Active Substance: TAMSULOSIN HYDROCHLORIDE
     Dosage: 400 MICROGRAM, QD
  10. LATANOPROST. [Concomitant]
     Active Substance: LATANOPROST
  11. TIGECYCLINE. [Suspect]
     Active Substance: TIGECYCLINE
  12. LANSOPRAZOLE. [Concomitant]
     Active Substance: LANSOPRAZOLE
     Dosage: 30 MILLIGRAM, QD
  13. CHOLECALCIFEROL [Concomitant]
     Active Substance: CHOLECALCIFEROL
     Dosage: 1000 INTERNATIONAL UNIT, QD
  14. SOLIFENACIN SUCCINATE. [Concomitant]
     Active Substance: SOLIFENACIN SUCCINATE
     Dosage: 6 MILLIGRAM, QD
  15. DORZOLAMIDE HYDROCHLORIDE. [Concomitant]
     Active Substance: DORZOLAMIDE HYDROCHLORIDE

REACTIONS (6)
  - Unresponsive to stimuli [Unknown]
  - Liver function test abnormal [Unknown]
  - Weight decreased [Unknown]
  - Ataxia [Unknown]
  - Nausea [Unknown]
  - Decreased appetite [Unknown]
